FAERS Safety Report 5519135-5 (Version None)
Quarter: 2007Q4

REPORT INFORMATION
  Report Type: 
  Country: None (occurrence: None)
  Receive Date: 20071114
  Receipt Date: 20071114
  Transmission Date: 20080405
  Serious: Yes (Life-Threatening, Hospitalization)
  Sender: FDA-Public Use
  Company Number: None

PATIENT
  Age: 29 Year
  Sex: Male
  Weight: 47.6277 kg

DRUGS (1)
  1. PROVIGIL [Suspect]
     Indication: HYPERSOMNIA
     Dosage: 200 MG DAILY PO 400 MG DAILY PO
     Route: 048
     Dates: start: 20071016, end: 20071102

REACTIONS (2)
  - DRUG RASH WITH EOSINOPHILIA AND SYSTEMIC SYMPTOMS [None]
  - NECK PAIN [None]
